FAERS Safety Report 17034297 (Version 1)
Quarter: 2019Q4

REPORT INFORMATION
  Report Type: Spontaneous
  Country: DE (occurrence: DE)
  Receive Date: 20191114
  Receipt Date: 20191114
  Transmission Date: 20200122
  Serious: Yes (Other)
  Sender: FDA-Public Use
  Company Number: DE-AUROBINDO-AUR-APL-2019-071681

PATIENT
  Age: 41 Year
  Sex: Male

DRUGS (2)
  1. DONEPEZIL. [Suspect]
     Active Substance: DONEPEZIL
     Indication: DEMENTIA ALZHEIMER^S TYPE
     Dosage: 10 MILLIGRAM, ONCE A DAY
     Route: 065
  2. MEMANTINE. [Concomitant]
     Active Substance: MEMANTINE
     Indication: DEMENTIA ALZHEIMER^S TYPE
     Dosage: 20 MILLIGRAM, ONCE A DAY
     Route: 065

REACTIONS (1)
  - Pleurothotonus [Recovered/Resolved]
